FAERS Safety Report 18096800 (Version 1)
Quarter: 2020Q3

REPORT INFORMATION
  Report Type: Spontaneous
  Country: US (occurrence: US)
  Receive Date: 20200730
  Receipt Date: 20200730
  Transmission Date: 20201103
  Serious: Yes (Life-Threatening)
  Sender: FDA-Public Use
  Company Number: None

PATIENT
  Age: 43 Year
  Sex: Female
  Weight: 114.3 kg

DRUGS (4)
  1. METHOTREXATE. [Concomitant]
     Active Substance: METHOTREXATE
     Dates: start: 20200101
  2. FOLIC ACID. [Concomitant]
     Active Substance: FOLIC ACID
     Dates: start: 20100101
  3. RINVOQ [Suspect]
     Active Substance: UPADACITINIB
     Indication: RHEUMATOID ARTHRITIS
     Route: 048
     Dates: start: 20200617, end: 20200720
  4. NUVARING [Concomitant]
     Active Substance: ETHINYL ESTRADIOL\ETONOGESTREL

REACTIONS (2)
  - Pulmonary embolism [None]
  - Deep vein thrombosis [None]

NARRATIVE: CASE EVENT DATE: 20200720
